FAERS Safety Report 17455509 (Version 2)
Quarter: 2020Q3

REPORT INFORMATION
  Report Type: Spontaneous
  Country: SE (occurrence: SE)
  Receive Date: 20200225
  Receipt Date: 20200706
  Transmission Date: 20201102
  Serious: Yes (Hospitalization)
  Sender: FDA-Public Use
  Company Number: SE-AMGEN-SWESP2020028019

PATIENT
  Age: 78 Year
  Sex: Female

DRUGS (15)
  1. LEVAXIN [Concomitant]
     Active Substance: LEVOTHYROXINE SODIUM
     Dosage: 100 MG RESPECTIVELY 125 MICROGRAM, TOTAL WEEKLY DOSE 825 MICROGRAM
  2. EMGESAN [Concomitant]
     Active Substance: MAGNESIUM HYDROXIDE
     Dosage: 250 MILLIGRAM, 2 X 3
  3. CALCITUGG [Concomitant]
     Dosage: 500 MILLIGRAM, 1 X 3
  4. OMEPRAZOL [OMEPRAZOLE] [Concomitant]
     Active Substance: OMEPRAZOLE
     Dosage: 20 MILLIGRAM, 1 X 1
  5. RENVELA [Concomitant]
     Active Substance: SEVELAMER CARBONATE
     Dosage: 800 MILLIGRAM, 2 +2 + 2 + 0
  6. ALLOPURINOL. [Concomitant]
     Active Substance: ALLOPURINOL
     Dosage: 100 MILLIGRAM, 1 X 1
  7. PROLIA [Suspect]
     Active Substance: DENOSUMAB
     Indication: OSTEOPOROSIS
     Dosage: 60 MILLIGRAM, TOTAL
     Route: 058
     Dates: start: 20200102, end: 20200102
  8. SIMVASTATIN. [Concomitant]
     Active Substance: SIMVASTATIN
     Dosage: 10 MILLIGRAM, 0 + 0 + 0 + 1
  9. METOPROLOL. [Concomitant]
     Active Substance: METOPROLOL
     Dosage: 25 MILLIGRAM, 1 X 1
  10. DETREMIN [Concomitant]
     Dosage: 10 000 E/ML, 10 DROPS 1 TIME PER WEEK
  11. EPREX [Concomitant]
     Active Substance: ERYTHROPOIETIN
     Dosage: 2000 E, QWK
  12. LERKANIDIPIN 2CARE4 [Concomitant]
     Dosage: 10 MILLIGRAM, 1 X 1
  13. BEHEPAN [CYANOCOBALAMIN] [Concomitant]
     Active Substance: CYANOCOBALAMIN
     Dosage: 1 MILLIGRAM PER MILLILITRE, QMO
  14. FOLACIN [FOLIC ACID] [Concomitant]
     Active Substance: FOLIC ACID
     Dosage: 1 MILLIGRAM, 1 X 1
  15. ALFACALCIDOL [Concomitant]
     Active Substance: ALFACALCIDOL
     Dosage: 0.25 MILLIGRAM, 1 X 1

REACTIONS (2)
  - Condition aggravated [Recovered/Resolved]
  - Hypocalcaemia [Recovered/Resolved]

NARRATIVE: CASE EVENT DATE: 20200107
